FAERS Safety Report 8614801-7 (Version None)
Quarter: 2012Q3

REPORT INFORMATION
  Report Type: 
  Country: None (occurrence: None)
  Receive Date: 20120823
  Receipt Date: 20120730
  Transmission Date: 20120928
  Serious: No
  Sender: FDA-Public Use
  Company Number: US-009507513-1208USA000167

PATIENT

DRUGS (1)
  1. JANUMET XR [Suspect]
     Indication: DIABETES MELLITUS
     Dosage: 100 MG SITAGLIPTIN PHOSPHATE / 1000 MG METFORMIN HYDROCHLORIDE, QD
     Route: 048

REACTIONS (1)
  - GLYCOSYLATED HAEMOGLOBIN DECREASED [None]
